FAERS Safety Report 9709845 (Version 1)
Quarter: 2013Q4

REPORT INFORMATION
  Report Type: Spontaneous
  Country: US (occurrence: US)
  Receive Date: 20131126
  Receipt Date: 20131126
  Transmission Date: 20140711
  Serious: No
  Sender: FDA-Public Use
  Company Number: US-PFIZER INC-2013333983

PATIENT
  Sex: Female

DRUGS (1)
  1. ADVIL [Suspect]
     Dosage: 8-10 CAPSULES (200 MG), ONCE
     Dates: start: 20131119, end: 20131119

REACTIONS (2)
  - Accidental overdose [Unknown]
  - Abdominal pain upper [Unknown]
